FAERS Safety Report 21571228 (Version 2)
Quarter: 2023Q1

REPORT INFORMATION
  Report Type: Spontaneous
  Country: US (occurrence: US)
  Receive Date: 20221109
  Receipt Date: 20230125
  Transmission Date: 20230418
  Serious: Yes (Hospitalization, Other)
  Sender: FDA-Public Use
  Company Number: US-BRISTOL-MYERS SQUIBB COMPANY-2022-133970

PATIENT
  Age: 82 Year
  Sex: Female

DRUGS (1)
  1. REVLIMID [Suspect]
     Active Substance: LENALIDOMIDE
     Indication: Plasma cell myeloma
     Dosage: TAKE 1CAPSULE BY MOUTH ONCE DAILY FOR 21 DAYS ON AND 7 DAYS OFF.
     Route: 048
     Dates: start: 20220111

REACTIONS (3)
  - Hallucination [Unknown]
  - Lung disorder [Unknown]
  - Fluid retention [Unknown]
